FAERS Safety Report 9591835 (Version 2)
Quarter: 2013Q4

REPORT INFORMATION
  Report Type: Spontaneous
  Country: US (occurrence: US)
  Receive Date: 20131004
  Receipt Date: 20131004
  Transmission Date: 20140711
  Serious: Yes (Hospitalization)
  Sender: FDA-Public Use
  Company Number: US-AMGEN-USASP2012073514

PATIENT
  Age: 57 Year
  Sex: Female

DRUGS (3)
  1. ENBREL [Suspect]
     Indication: RHEUMATOID ARTHRITIS
     Dosage: 50 MG, QWK
     Dates: start: 20120821
  2. METHOTREXATE [Concomitant]
     Dosage: 17.5 MG, QWK
     Route: 048
  3. PREDNISONE [Concomitant]
     Dosage: 15 MG, QD
     Route: 048

REACTIONS (1)
  - Pneumonia [Recovered/Resolved]
